FAERS Safety Report 13419250 (Version 2)
Quarter: 2017Q2

REPORT INFORMATION
  Report Type: Spontaneous
  Country: US (occurrence: US)
  Receive Date: 20170407
  Receipt Date: 20170503
  Transmission Date: 20170830
  Serious: No
  Sender: FDA-Public Use
  Company Number: US-ASTRAZENECA-2017SE32789

PATIENT
  Age: 28656 Day
  Sex: Female
  Weight: 56.2 kg

DRUGS (7)
  1. ALBUTEROL INHALER [Concomitant]
     Active Substance: ALBUTEROL
     Dosage: UNKNOWN
     Route: 065
  2. METOPROLOL. [Suspect]
     Active Substance: METOPROLOL
     Dosage: UNKNOWN
     Route: 048
  3. TUDORZA PRESSAIR [Suspect]
     Active Substance: ACLIDINIUM BROMIDE
     Indication: EMPHYSEMA
     Dosage: THREE TIMES
     Route: 055
     Dates: start: 20170326
  4. VITAMINS NOS [Concomitant]
     Active Substance: VITAMINS
     Dosage: UNKNOWN
     Route: 065
  5. TUDORZA PRESSAIR [Suspect]
     Active Substance: ACLIDINIUM BROMIDE
     Indication: EMPHYSEMA
     Route: 055
  6. TUDORZA PRESSAIR [Suspect]
     Active Substance: ACLIDINIUM BROMIDE
     Indication: EMPHYSEMA
     Dosage: TWO TO THREE INHALATIONS AT A TIME
     Route: 055
     Dates: start: 2016
  7. SIMVASTATIN. [Concomitant]
     Active Substance: SIMVASTATIN
     Dosage: UNKNOWN
     Route: 065

REACTIONS (4)
  - Feeling abnormal [Not Recovered/Not Resolved]
  - Circumstance or information capable of leading to device use error [Not Recovered/Not Resolved]
  - Intentional product use issue [Not Recovered/Not Resolved]
  - Device malfunction [Not Recovered/Not Resolved]

NARRATIVE: CASE EVENT DATE: 20170317
